FAERS Safety Report 5308017-X (Version None)
Quarter: 2007Q1

REPORT INFORMATION
  Report Type: 
  Country: None (occurrence: None)
  Receive Date: 20070130
  Receipt Date: 20060818
  Transmission Date: 20070707
  Serious: Yes (Life-Threatening)
  Sender: FDA-Public Use
  Company Number: 06P-163-0344037-00

PATIENT
  Age: 47 Year
  Sex: Female

DRUGS (3)
  1. NIMBEX [Suspect]
     Indication: INDUCTION OF ANAESTHESIA
     Dosage: INTRAVENOUS
     Route: 042
     Dates: start: 20060801, end: 20060801
  2. CEFAZOLIN SODIUM [Concomitant]
  3. PROPOFOL [Concomitant]

REACTIONS (2)
  - ANAPHYLACTIC REACTION [None]
  - FLUSHING [None]
